FAERS Safety Report 23677815 (Version 1)
Quarter: 2024Q1

REPORT INFORMATION
  Report Type: Spontaneous
  Country: US (occurrence: US)
  Receive Date: 20240327
  Receipt Date: 20240327
  Transmission Date: 20240410
  Serious: No
  Sender: FDA-Public Use
  Company Number: US-JNJFOC-20240362263

PATIENT
  Age: 62 Year
  Sex: Male

DRUGS (4)
  1. ZYTIGA [Suspect]
     Active Substance: ABIRATERONE ACETATE
     Indication: Prostate cancer
     Route: 048
     Dates: start: 20230124
  2. ORGOVYX [Suspect]
     Active Substance: RELUGOLIX
     Indication: Neoplasm malignant
     Route: 048
     Dates: start: 20230124, end: 20240124
  3. ORGOVYX [Suspect]
     Active Substance: RELUGOLIX
     Route: 048
     Dates: start: 20230125
  4. TRULICITY [Concomitant]
     Active Substance: DULAGLUTIDE

REACTIONS (12)
  - Emotional disorder [Not Recovered/Not Resolved]
  - Pain [Unknown]
  - Vomiting [Unknown]
  - Decreased appetite [Unknown]
  - Nausea [Unknown]
  - Dizziness [Unknown]
  - Asthenia [Not Recovered/Not Resolved]
  - Depression [Not Recovered/Not Resolved]
  - Abdominal discomfort [Unknown]
  - Constipation [Unknown]
  - Insomnia [Unknown]
  - Crying [Unknown]
